FAERS Safety Report 6930761-9 (Version None)
Quarter: 2010Q3

REPORT INFORMATION
  Report Type: 
  Country: None (occurrence: None)
  Receive Date: 20100818
  Receipt Date: 20100813
  Transmission Date: 20110219
  Serious: Yes (Hospitalization, Other)
  Sender: FDA-Public Use
  Company Number: US-PURDUE-USA-2009-0041006

PATIENT
  Sex: Male
  Weight: 93.6 kg

DRUGS (14)
  1. DILAUDID [Suspect]
     Indication: PAIN
     Dosage: 0.2 MG, DAILY
     Route: 042
     Dates: start: 20090921, end: 20090922
  2. MS CONTIN [Suspect]
     Indication: PAIN
     Dosage: 15 MG, Q12H
     Route: 048
     Dates: start: 20090923, end: 20090924
  3. CARBIDOPA AND LEVODOPA [Suspect]
     Dosage: UNK
     Dates: start: 20090914
  4. CARBIDOPA AND LEVODOPA [Suspect]
     Indication: ON AND OFF PHENOMENON
  5. PERCOCET [Suspect]
     Indication: PAIN
     Dosage: 5 MG, Q4H
     Dates: start: 20090922, end: 20091002
  6. CLONAZEPAM [Concomitant]
     Dosage: 1 MG, HS
     Dates: start: 20090913, end: 20090923
  7. HALDOL [Concomitant]
     Dosage: 10 MG, DAILY
     Dates: start: 20090925, end: 20090925
  8. HEPARIN [Concomitant]
     Dosage: 5000 UNIT, Q12H
     Dates: start: 20090925, end: 20090925
  9. SIMVASTATIN [Concomitant]
     Dosage: 20 MG, DAILY
     Dates: start: 20090701
  10. LORAZEPAM [Concomitant]
     Dosage: 1 MG, DAILY
     Dates: start: 20090924, end: 20090926
  11. SERTALINE [Concomitant]
     Dosage: 100 MG, HS
     Dates: start: 20060201
  12. MS CONTIN [Concomitant]
  13. DIPHENHYDRAMINE [Concomitant]
     Dosage: 25 MG, PRN
     Dates: start: 20090915, end: 20090917
  14. METHYL NALTREXONE [Concomitant]
     Dosage: 12 MG, DAILY
     Dates: start: 20090924, end: 20090924

REACTIONS (8)
  - ATELECTASIS [None]
  - CONFUSIONAL STATE [None]
  - CONSTIPATION [None]
  - DEHYDRATION [None]
  - DELIRIUM [None]
  - ILEUS PARALYTIC [None]
  - PNEUMONIA [None]
  - TOXIC ENCEPHALOPATHY [None]
